FAERS Safety Report 20166414 (Version 1)
Quarter: 2021Q4

REPORT INFORMATION
  Report Type: Spontaneous
  Country: US (occurrence: US)
  Receive Date: 20211209
  Receipt Date: 20211209
  Transmission Date: 20220303
  Serious: No
  Sender: FDA-Public Use
  Company Number: US-MYLANLABS-2021M1074113

PATIENT
  Sex: Female

DRUGS (1)
  1. NORETHINDRONE [Suspect]
     Active Substance: NORETHINDRONE
     Indication: Contraception
     Route: 048

REACTIONS (1)
  - Intermenstrual bleeding [Not Recovered/Not Resolved]
